FAERS Safety Report 8806596 (Version 1)
Quarter: 2012Q4

REPORT INFORMATION
  Report Type: 
  Country: US (occurrence: US)
  Receive Date: 20120925
  Receipt Date: 20120925
  Transmission Date: 20130627
  Serious: Yes (Other)
  Sender: FDA-Public Use
  Company Number: US-JNJFOC-20120908461

PATIENT
  Age: 74 Year
  Sex: Male

DRUGS (6)
  1. BENADRYL ALLERGY ULTRATAB [Suspect]
     Indication: PRURITUS
     Route: 048
  2. HIGH BLOOD PRESSURE MEDICATION NOS [Concomitant]
     Indication: HYPERTENSION
     Route: 065
  3. VITAMINS NOS [Concomitant]
     Route: 065
  4. LASIX [Concomitant]
     Indication: OEDEMA PERIPHERAL
     Route: 065
  5. POTASSIUM [Concomitant]
     Route: 065
  6. VITAMIN B12 [Concomitant]
     Route: 065

REACTIONS (4)
  - Head discomfort [Recovered/Resolved]
  - Homicidal ideation [Recovered/Resolved]
  - Oedema peripheral [Not Recovered/Not Resolved]
  - Product packaging issue [Unknown]
